FAERS Safety Report 21916596 (Version 1)
Quarter: 2023Q1

REPORT INFORMATION
  Report Type: Spontaneous
  Country: IN (occurrence: IN)
  Receive Date: 20230126
  Receipt Date: 20230126
  Transmission Date: 20230418
  Serious: Yes (Death, Other)
  Sender: FDA-Public Use
  Company Number: IN-PFIZER INC-2020379830

PATIENT
  Age: 45 Year
  Sex: Male

DRUGS (1)
  1. CRIZOTINIB [Suspect]
     Active Substance: CRIZOTINIB
     Indication: Lung neoplasm malignant
     Dosage: 250 MG, 2X/DAY
     Route: 048
     Dates: start: 20180516

REACTIONS (5)
  - Death [Fatal]
  - Heart rate decreased [Unknown]
  - Blood albumin decreased [Unknown]
  - Blood thyroid stimulating hormone increased [Unknown]
  - Blood pressure decreased [Unknown]
